FAERS Safety Report 22656260 (Version 1)
Quarter: 2023Q2

REPORT INFORMATION
  Report Type: Spontaneous
  Country: JP (occurrence: None)
  Receive Date: 20230629
  Receipt Date: 20230629
  Transmission Date: 20230722
  Serious: Yes (Hospitalization, Other)
  Sender: FDA-Public Use
  Company Number: 2023A146039

PATIENT
  Age: 63 Year
  Sex: Male

DRUGS (3)
  1. IMFINZI [Suspect]
     Active Substance: DURVALUMAB
     Indication: Hepatocellular carcinoma
     Dosage: DOSE UNKNOWN
     Route: 041
     Dates: start: 20230412
  2. IMJUDO [Suspect]
     Active Substance: TREMELIMUMAB-ACTL
     Indication: Hepatocellular carcinoma
     Dosage: DOSE UNKNOWN
     Route: 041
     Dates: start: 20230412, end: 20230412
  3. SACUBITRIL\VALSARTAN [Concomitant]
     Active Substance: SACUBITRIL\VALSARTAN
     Dosage: DOSE UNKNOWN

REACTIONS (4)
  - Immune-mediated enterocolitis [Unknown]
  - Metabolic acidosis [Unknown]
  - Prerenal failure [Unknown]
  - Hyperkalaemia [Unknown]

NARRATIVE: CASE EVENT DATE: 20230101
